FAERS Safety Report 6502951-0 (Version None)
Quarter: 2009Q4

REPORT INFORMATION
  Report Type: 
  Country: None (occurrence: None)
  Receive Date: 20091217
  Receipt Date: 20091207
  Transmission Date: 20100525
  Serious: Yes (Other)
  Sender: FDA-Public Use
  Company Number: PHEH2009US17310

PATIENT
  Sex: Female
  Weight: 68.027 kg

DRUGS (4)
  1. EXTAVIA [Suspect]
     Indication: MULTIPLE SCLEROSIS
     Dosage: 0.5 MG, QOD
     Route: 058
     Dates: start: 20091109
  2. METHIZOL [Concomitant]
     Dosage: 5 MG, QD
  3. LAMOTRIGINE [Concomitant]
     Dosage: 100 MG, BID
  4. CONTRACEPTIVES NOS [Concomitant]

REACTIONS (4)
  - CONDITION AGGRAVATED [None]
  - INFLUENZA LIKE ILLNESS [None]
  - INJECTION SITE ERYTHEMA [None]
  - OPTIC NEURITIS [None]
